FAERS Safety Report 18054436 (Version 1)
Quarter: 2020Q3

REPORT INFORMATION
  Report Type: Spontaneous
  Country: FR (occurrence: FR)
  Receive Date: 20200722
  Receipt Date: 20200722
  Transmission Date: 20201103
  Serious: Yes (Other)
  Sender: FDA-Public Use
  Company Number: FR-TEVA-2020-FR-1803610

PATIENT
  Age: 95 Year
  Sex: Female

DRUGS (4)
  1. DALACINE [Suspect]
     Active Substance: CLINDAMYCIN
     Dosage: UNSPECIFIED
     Route: 048
     Dates: start: 20200619, end: 20200621
  2. AMOXICILLINE [Suspect]
     Active Substance: AMOXICILLIN
     Indication: ERYSIPELAS
     Dosage: UNSPECIFIED
     Route: 048
     Dates: start: 20200608, end: 20200612
  3. AMOXICILLINE [Suspect]
     Active Substance: AMOXICILLIN
     Dosage: UNSPECIFIED
     Route: 048
     Dates: start: 20200619, end: 20200621
  4. DALACINE [Suspect]
     Active Substance: CLINDAMYCIN
     Indication: ERYSIPELAS
     Dosage: UNSPECIFIED
     Route: 048
     Dates: start: 20200605, end: 20200612

REACTIONS (2)
  - Eosinophil count increased [Recovering/Resolving]
  - Rash maculo-papular [Recovered/Resolved]

NARRATIVE: CASE EVENT DATE: 20200621
